FAERS Safety Report 21943092 (Version 3)
Quarter: 2023Q1

REPORT INFORMATION
  Report Type: Report from Study
  Country: US (occurrence: US)
  Receive Date: 20230202
  Receipt Date: 20230313
  Transmission Date: 20230417
  Serious: Yes (Hospitalization)
  Sender: FDA-Public Use
  Company Number: US-ABBVIE-4292274

PATIENT
  Age: 41 Year
  Sex: Female

DRUGS (1)
  1. HUMIRA [Suspect]
     Active Substance: ADALIMUMAB
     Indication: Rheumatoid arthritis
     Route: 058
     Dates: start: 20220929

REACTIONS (10)
  - Gastrointestinal pain [Unknown]
  - Fatigue [Not Recovered/Not Resolved]
  - Biliary tract dilation procedure [Unknown]
  - Sleep deficit [Unknown]
  - Eye swelling [Unknown]
  - Constipation [Recovering/Resolving]
  - Abdominal mass [Unknown]
  - Gastrointestinal disorder [Recovering/Resolving]
  - Upper gastrointestinal haemorrhage [Recovering/Resolving]
  - Vomiting [Unknown]

NARRATIVE: CASE EVENT DATE: 20221201
